FAERS Safety Report 17806969 (Version 1)
Quarter: 2020Q2

REPORT INFORMATION
  Report Type: Spontaneous
  Country: US (occurrence: US)
  Receive Date: 20200520
  Receipt Date: 20200520
  Transmission Date: 20200714
  Serious: No
  Sender: FDA-Public Use
  Company Number: US-PFIZER INC-2018337909

PATIENT
  Age: 65 Year
  Sex: Male

DRUGS (7)
  1. LATANOPROST. [Suspect]
     Active Substance: LATANOPROST
     Dosage: UNK
     Route: 047
  2. LATANOPROST. [Suspect]
     Active Substance: LATANOPROST
     Dosage: UNK
  3. LATANOPROST. [Suspect]
     Active Substance: LATANOPROST
     Dosage: UNK
  4. LATANOPROST. [Suspect]
     Active Substance: LATANOPROST
     Dosage: UNK
  5. LATANOPROST. [Suspect]
     Active Substance: LATANOPROST
     Dosage: UNK
  6. LATANOPROST. [Suspect]
     Active Substance: LATANOPROST
     Dosage: UNK
  7. LATANOPROST. [Suspect]
     Active Substance: LATANOPROST
     Dosage: UNK

REACTIONS (3)
  - Accidental exposure to product [Unknown]
  - Exposure via skin contact [Unknown]
  - Product container issue [Unknown]
